FAERS Safety Report 13827129 (Version 1)
Quarter: 2017Q3

REPORT INFORMATION
  Report Type: Spontaneous
  Country: US (occurrence: US)
  Receive Date: 20170802
  Receipt Date: 20170802
  Transmission Date: 20171127
  Serious: No
  Sender: FDA-Public Use
  Company Number: US-ROCHE-665216

PATIENT
  Age: 72 Year
  Sex: Female
  Weight: 63.5 kg

DRUGS (9)
  1. RED YEAST RICE [Concomitant]
     Active Substance: DIETARY SUPPLEMENT
     Route: 065
  2. CALCIUM/VITAMIN D [Concomitant]
     Active Substance: CALCIUM\VITAMIN D
     Route: 065
  3. BONIVA [Suspect]
     Active Substance: IBANDRONATE SODIUM
     Indication: OSTEOPOROSIS
     Dosage: DURATION OF USE: 1 YEAR
     Route: 048
     Dates: start: 20071008, end: 20091012
  4. OMEPRAZOLE. [Concomitant]
     Active Substance: OMEPRAZOLE
     Dosage: DOSE: 20 DAILY
     Route: 065
  5. ZETIA [Concomitant]
     Active Substance: EZETIMIBE
     Route: 048
  6. ASA [Concomitant]
     Active Substance: ASPIRIN
     Route: 065
  7. HCTZ [Concomitant]
     Active Substance: HYDROCHLOROTHIAZIDE
     Dosage: DOSE: ILLEGIBLE
     Route: 065
  8. LEVOXYL [Concomitant]
     Active Substance: LEVOTHYROXINE SODIUM
     Route: 065
  9. CENTRUM [Concomitant]
     Active Substance: VITAMINS
     Route: 065

REACTIONS (3)
  - Pain in jaw [Unknown]
  - Crepitations [Unknown]
  - Dyspepsia [Unknown]

NARRATIVE: CASE EVENT DATE: 200905
